FAERS Safety Report 10263307 (Version 2)
Quarter: 2014Q2

REPORT INFORMATION
  Report Type: Report from Study
  Country: US (occurrence: US)
  Receive Date: 20140626
  Receipt Date: 20140626
  Transmission Date: 20141212
  Serious: Yes (Other)
  Sender: FDA-Public Use
  Company Number: US-MYLANLABS-2012S1024747

PATIENT
  Age: 22 Year
  Sex: Female
  Weight: 90.72 kg

DRUGS (12)
  1. CLOZAPINE TABLETS [Suspect]
     Indication: PSYCHOTIC DISORDER
     Route: 048
     Dates: start: 20081213, end: 20130625
  2. CLOZAPINE TABLETS [Suspect]
     Indication: PSYCHOTIC DISORDER
     Route: 048
     Dates: start: 20081213, end: 20130625
  3. MIRALAX /00754501/ [Concomitant]
  4. DEXILANT [Concomitant]
  5. DILTIAZEM [Concomitant]
     Indication: TACHYCARDIA
  6. DEPAKOTE [Concomitant]
  7. LACTULOSE [Concomitant]
  8. LEVOTHYROXINE [Concomitant]
     Indication: HYPOTHYROIDISM
  9. LORATADINE [Concomitant]
  10. DEPO PROVERA [Concomitant]
     Dosage: EVERY 3 MONTHS
  11. ZOLOFT [Concomitant]
  12. VITAMIN D [Concomitant]

REACTIONS (1)
  - Granulocytopenia [Not Recovered/Not Resolved]
